FAERS Safety Report 7313904-7 (Version None)
Quarter: 2011Q1

REPORT INFORMATION
  Report Type: 
  Country: None (occurrence: None)
  Receive Date: 20110225
  Receipt Date: 20110210
  Transmission Date: 20110831
  Serious: Yes (Other)
  Sender: FDA-Public Use
  Company Number: US-CELGENEUS-163-21880-11021794

PATIENT
  Age: 68 Year
  Sex: Male
  Weight: 86.714 kg

DRUGS (2)
  1. DEXAMETHASONE [Concomitant]
     Route: 065
  2. REVLIMID [Suspect]
     Route: 065

REACTIONS (2)
  - NO THERAPEUTIC RESPONSE [None]
  - ADVERSE DRUG REACTION [None]
